FAERS Safety Report 12565114 (Version 1)
Quarter: 2016Q3

REPORT INFORMATION
  Report Type: Spontaneous
  Country: US (occurrence: None)
  Receive Date: 20160715
  Receipt Date: 20160715
  Transmission Date: 20161109
  Serious: No
  Sender: FDA-Public Use
  Company Number: None

PATIENT

DRUGS (1)
  1. PANTAPRAZOLE [Suspect]
     Active Substance: PANTOPRAZOLE SODIUM

REACTIONS (9)
  - Drug ineffective [None]
  - Muscle disorder [None]
  - Abdominal distension [None]
  - Gastrointestinal pain [None]
  - Malaise [None]
  - Feeling abnormal [None]
  - Condition aggravated [None]
  - Gastrointestinal disorder [None]
  - Economic problem [None]
